FAERS Safety Report 7904167-X (Version None)
Quarter: 2011Q4

REPORT INFORMATION
  Report Type: 
  Country: None (occurrence: None)
  Receive Date: 20111109
  Receipt Date: 20111104
  Transmission Date: 20120403
  Serious: Yes (Other)
  Sender: FDA-Public Use
  Company Number: US-PFIZER INC-2011270551

PATIENT
  Sex: Female

DRUGS (1)
  1. SUTENT [Suspect]
     Dosage: 50 MG, UNK
     Dates: start: 20111001

REACTIONS (4)
  - BONE NEOPLASM MALIGNANT [None]
  - NEOPLASM MALIGNANT [None]
  - HYPERTENSION [None]
  - PAIN [None]
